FAERS Safety Report 5033414-X (Version None)
Quarter: 2006Q2

REPORT INFORMATION
  Report Type: 
  Country: None (occurrence: None)
  Receive Date: 20060623
  Receipt Date: 20060609
  Transmission Date: 20061013
  Serious: Yes (Hospitalization)
  Sender: FDA-Public Use
  Company Number: JP-NOVOPROD-254004

PATIENT
  Age: 65 Year
  Sex: Female

DRUGS (1)
  1. NOVOLIN R [Suspect]
     Indication: DIABETES MELLITUS INSULIN-DEPENDENT

REACTIONS (12)
  - ANGER [None]
  - APHASIA [None]
  - DEHYDRATION [None]
  - DIABETES MELLITUS INADEQUATE CONTROL [None]
  - DIET REFUSAL [None]
  - GLYCOSYLATED HAEMOGLOBIN INCREASED [None]
  - HYPOGLYCAEMIA [None]
  - IRRITABILITY [None]
  - LACUNAR INFARCTION [None]
  - MOROSE [None]
  - PSYCHIATRIC SYMPTOM [None]
  - RESTLESSNESS [None]
